FAERS Safety Report 16632566 (Version 1)
Quarter: 2019Q3

REPORT INFORMATION
  Report Type: Spontaneous
  Country: US (occurrence: US)
  Receive Date: 20190725
  Receipt Date: 20190725
  Transmission Date: 20191004
  Serious: No
  Sender: FDA-Public Use
  Company Number: US-ABBVIE-18K-163-2491681-00

PATIENT
  Age: 77 Year
  Sex: Female

DRUGS (1)
  1. SYNTHROID [Suspect]
     Active Substance: LEVOTHYROXINE SODIUM
     Indication: THYROID HORMONES DECREASED
     Route: 048
     Dates: start: 1961

REACTIONS (9)
  - Product colour issue [Unknown]
  - Hyperhidrosis [Recovered/Resolved]
  - Skin warm [Recovered/Resolved]
  - Burning sensation [Recovered/Resolved]
  - Product shape issue [Unknown]
  - Nausea [Recovered/Resolved]
  - Tremor [Recovered/Resolved]
  - Hypoaesthesia [Recovered/Resolved]
  - Abdominal distension [Recovered/Resolved]

NARRATIVE: CASE EVENT DATE: 201809
